FAERS Safety Report 5031294-X (Version None)
Quarter: 2006Q2

REPORT INFORMATION
  Report Type: 
  Country: None (occurrence: None)
  Receive Date: 20060615
  Receipt Date: 20060531
  Transmission Date: 20061013
  Serious: Yes (Hospitalization)
  Sender: FDA-Public Use
  Company Number: RS005881-J

PATIENT
  Age: 54 Year
  Sex: Male
  Weight: 65 kg

DRUGS (4)
  1. RABEPRAZOLE SODIUM [Suspect]
     Indication: GASTRIC ULCER
     Dosage: 20 MG, 1 IN 1 D, ORAL
     Route: 048
     Dates: start: 20060202, end: 20060206
  2. RABEPRAZOLE SODIUM [Suspect]
     Indication: GASTRIC ULCER
     Dosage: 20 MG, 1 IN 1 D, ORAL
     Route: 048
     Dates: start: 20060214, end: 20060318
  3. NORVASC [Concomitant]
  4. LANSAP (LANSOPRAZOLE) [Concomitant]

REACTIONS (3)
  - APLASTIC ANAEMIA [None]
  - HAEMORRHAGE [None]
  - HELICOBACTER INFECTION [None]
